FAERS Safety Report 10023157 (Version 1)
Quarter: 2014Q1

REPORT INFORMATION
  Report Type: Spontaneous
  Country: GB (occurrence: GB)
  Receive Date: 20140320
  Receipt Date: 20140320
  Transmission Date: 20141002
  Serious: Yes (Other)
  Sender: FDA-Public Use
  Company Number: GB-JNJFOC-20140311569

PATIENT
  Age: 69 Year
  Sex: Female
  Weight: 54 kg

DRUGS (5)
  1. CETIRIZINE HYDROCHLORIDE [Suspect]
     Route: 065
  2. CETIRIZINE HYDROCHLORIDE [Suspect]
     Indication: PRODUCT USED FOR UNKNOWN INDICATION
     Route: 065
     Dates: start: 20140226
  3. DIPROBASE [Concomitant]
     Indication: PRODUCT USED FOR UNKNOWN INDICATION
     Route: 065
     Dates: start: 20140226
  4. PILOCARPINE HYDROCHLORIDE [Concomitant]
     Indication: PRODUCT USED FOR UNKNOWN INDICATION
     Route: 065
     Dates: start: 20131211
  5. TIMOPTOL [Concomitant]
     Indication: PRODUCT USED FOR UNKNOWN INDICATION
     Route: 065
     Dates: start: 20131211

REACTIONS (4)
  - Urinary incontinence [Recovered/Resolved]
  - Feeling hot [Unknown]
  - Hyperhidrosis [Unknown]
  - Dizziness [Unknown]
